FAERS Safety Report 7800463-5 (Version None)
Quarter: 2011Q4

REPORT INFORMATION
  Report Type: 
  Country: None (occurrence: None)
  Receive Date: 20111006
  Receipt Date: 20110930
  Transmission Date: 20120403
  Serious: Yes (Other)
  Sender: FDA-Public Use
  Company Number: CA-PFIZER INC-2011209328

PATIENT
  Age: 71 Year
  Sex: Male

DRUGS (5)
  1. XALATAN [Suspect]
     Indication: INTRAOCULAR PRESSURE TEST ABNORMAL
  2. RAMIPRIL [Concomitant]
     Indication: HYPERTENSION
     Dosage: 500 MG (1 TAB), 1X/DAY
     Dates: start: 20060101
  3. XALATAN [Suspect]
     Indication: GLAUCOMA
     Dosage: ONE DROP  IN BOTH EYES AT BEDTIME
     Route: 047
     Dates: start: 20100101
  4. LATANOPROST [Suspect]
     Dosage: UNK
  5. CRESTOR [Concomitant]
     Indication: BLOOD CHOLESTEROL INCREASED
     Dosage: 10 MG (1TAB), 1X/DAY
     Dates: start: 20060101

REACTIONS (1)
  - EYE LASER SURGERY [None]
